FAERS Safety Report 4602414-3 (Version None)
Quarter: 2005Q1

REPORT INFORMATION
  Report Type: 
  Country: None (occurrence: None)
  Receive Date: 20050307
  Receipt Date: 20050224
  Transmission Date: 20050727
  Serious: Yes (Other)
  Sender: FDA-Public Use
  Company Number: 200510838BCC

PATIENT
  Age: 78 Year
  Sex: Female
  Weight: 57.1532 kg

DRUGS (1)
  1. PHILLIPS LIQUID GELS [Suspect]
     Indication: CONSTIPATION
     Dosage: ORAL
     Route: 048
     Dates: start: 20050223

REACTIONS (3)
  - DIFFICULTY IN WALKING [None]
  - DIZZINESS [None]
  - TINNITUS [None]
